FAERS Safety Report 7049152-8 (Version None)
Quarter: 2010Q4

REPORT INFORMATION
  Report Type: 
  Country: None (occurrence: None)
  Receive Date: 20101018
  Receipt Date: 20101005
  Transmission Date: 20110411
  Serious: Yes (Other)
  Sender: FDA-Public Use
  Company Number: PHHY2010DE64739

PATIENT
  Sex: Female

DRUGS (2)
  1. RASILEZ [Suspect]
     Dosage: 150 MG, QD
     Dates: start: 20090401, end: 20100901
  2. MYFORTIC [Suspect]
     Indication: IMMUNOSUPPRESSANT DRUG THERAPY
     Dosage: UNK
     Dates: start: 20090101, end: 20100901

REACTIONS (2)
  - ALVEOLITIS ALLERGIC [None]
  - COUGH [None]
